FAERS Safety Report 9901334 (Version 2)
Quarter: 2014Q1

REPORT INFORMATION
  Report Type: Spontaneous
  Country: US (occurrence: US)
  Receive Date: 20140217
  Receipt Date: 20140310
  Transmission Date: 20141002
  Serious: No
  Sender: FDA-Public Use
  Company Number: US-009507513-1402USA006385

PATIENT
  Sex: Female

DRUGS (2)
  1. NEXPLANON [Suspect]
     Dosage: UNK
     Route: 059
  2. NEXPLANON [Suspect]
     Dosage: ANOTHER ONE

REACTIONS (4)
  - Device expulsion [Recovered/Resolved]
  - Device deployment issue [Recovered/Resolved]
  - Device dislocation [Recovered/Resolved]
  - Medical device complication [Recovered/Resolved]
